FAERS Safety Report 9670760 (Version 3)
Quarter: 2013Q4

REPORT INFORMATION
  Report Type: Spontaneous
  Country: US (occurrence: US)
  Receive Date: 20131106
  Receipt Date: 20131223
  Transmission Date: 20140711
  Serious: Yes (Other)
  Sender: FDA-Public Use
  Company Number: US-JNJFOC-20100102128

PATIENT
  Age: 15 Year
  Sex: Male
  Weight: 60.78 kg

DRUGS (10)
  1. REMICADE [Suspect]
     Indication: CROHN^S DISEASE
     Dosage: 6 TO 8 WEEKS
     Route: 042
     Dates: start: 20100104
  2. REMICADE [Suspect]
     Indication: CROHN^S DISEASE
     Dosage: (FREQUENCY UNSPECIFIED)
     Route: 042
     Dates: start: 20080225
  3. REMICADE [Suspect]
     Indication: CROHN^S DISEASE
     Dosage: 6 TO 8 WEEKS
     Route: 042
     Dates: start: 20100301, end: 20101008
  4. REMICADE [Suspect]
     Indication: CROHN^S DISEASE
     Dosage: 6 TO 8 WEEKS
     Route: 042
     Dates: start: 20100104
  5. REMICADE [Suspect]
     Indication: CROHN^S DISEASE
     Dosage: (FREQUENCY UNSPECIFIED)
     Route: 042
     Dates: start: 20080225
  6. REMICADE [Suspect]
     Indication: CROHN^S DISEASE
     Dosage: 6 TO 8 WEEKS
     Route: 042
     Dates: start: 20100301, end: 20101008
  7. OMEPRAZOLE [Concomitant]
     Route: 048
  8. PREDNISONE [Concomitant]
     Indication: PREMEDICATION
     Dosage: (3 DOSES PRIOR TO INFUSION)
     Route: 065
  9. TYLENOL [Concomitant]
     Indication: PREMEDICATION
     Route: 048
     Dates: start: 20100104
  10. BENADRYL [Concomitant]
     Indication: PREMEDICATION
     Route: 048
     Dates: start: 20100104

REACTIONS (18)
  - Pilonidal cyst [Recovering/Resolving]
  - Anal fistula [Unknown]
  - Enteritis [Unknown]
  - Abdominal pain [Unknown]
  - Diarrhoea [Unknown]
  - Haemorrhoids [Unknown]
  - Infusion related reaction [Recovered/Resolved]
  - Malaise [Recovered/Resolved]
  - Flushing [Recovered/Resolved]
  - Nausea [Recovered/Resolved]
  - Tachycardia [Recovered/Resolved]
  - Dyspnoea [Recovered/Resolved]
  - Blood pressure increased [Recovered/Resolved]
  - Erythema [Recovered/Resolved]
  - Hyperhidrosis [Recovered/Resolved]
  - C-reactive protein increased [Recovered/Resolved]
  - Chest pain [Unknown]
  - Gastrooesophageal reflux disease [Unknown]
